FAERS Safety Report 18156636 (Version 1)
Quarter: 2020Q3

REPORT INFORMATION
  Report Type: Spontaneous
  Country: US (occurrence: US)
  Receive Date: 20200815
  Receipt Date: 20200815
  Transmission Date: 20201103
  Serious: Yes (Hospitalization)
  Sender: FDA-Public Use
  Company Number: None

PATIENT
  Age: 50 Year
  Sex: Female
  Weight: 40.8 kg

DRUGS (8)
  1. TOPOTECAN [Suspect]
     Active Substance: TOPOTECAN HYDROCHLORIDE
     Dates: end: 20200627
  2. VIMOVO [Concomitant]
     Active Substance: ESOMEPRAZOLE MAGNESIUM\NAPROXEN
  3. MYCAMINE 100MG [Concomitant]
  4. VORICAONAZOLE 200MG [Concomitant]
  5. TAZOPERAN 4.5G [Concomitant]
  6. CEFTIAXONE 1G [Concomitant]
  7. FILGRASTIN 150MCG [Concomitant]
  8. TRIAXONE [Concomitant]

REACTIONS (5)
  - C-reactive protein increased [None]
  - Infection [None]
  - Device related infection [None]
  - Systemic candida [None]
  - Pyrexia [None]

NARRATIVE: CASE EVENT DATE: 20200627
